FAERS Safety Report 17391861 (Version 1)
Quarter: 2020Q1

REPORT INFORMATION
  Report Type: Spontaneous
  Country: US (occurrence: US)
  Receive Date: 20200207
  Receipt Date: 20200207
  Transmission Date: 20200409
  Serious: No
  Sender: FDA-Public Use
  Company Number: US-TEVA-2020-US-1179535

PATIENT

DRUGS (1)
  1. NORTRIPTYLINE HYDROCHLORIDE TEVA [Suspect]
     Active Substance: NORTRIPTYLINE HYDROCHLORIDE

REACTIONS (3)
  - Vomiting [Unknown]
  - Nausea [Unknown]
  - Product substitution issue [Unknown]
